FAERS Safety Report 4955262-9 (Version None)
Quarter: 2006Q1

REPORT INFORMATION
  Report Type: 
  Country: None (occurrence: None)
  Receive Date: 20060320
  Receipt Date: 20060308
  Transmission Date: 20060701
  Serious: Yes (Other)
  Sender: FDA-Public Use
  Company Number: 2006BH004879

PATIENT
  Age: 83 Year
  Sex: Male

DRUGS (2)
  1. BUMINATE 25% [Suspect]
     Indication: HYPOALBUMINAEMIA
     Dosage: 50 ML; IVDRI
     Route: 041
     Dates: start: 20060303, end: 20060305
  2. LASIX [Concomitant]

REACTIONS (4)
  - ANURIA [None]
  - CARDIAC FAILURE [None]
  - CONDITION AGGRAVATED [None]
  - INCORRECT DRUG ADMINISTRATION RATE [None]
